FAERS Safety Report 18890311 (Version 4)
Quarter: 2021Q2

REPORT INFORMATION
  Report Type: Report from Study
  Country: JP (occurrence: JP)
  Receive Date: 20210214
  Receipt Date: 20210617
  Transmission Date: 20210717
  Serious: Yes (Other)
  Sender: FDA-Public Use
  Company Number: NVSJ2020JP008237

PATIENT
  Age: 20 Month
  Sex: Female
  Weight: 9.2 kg

DRUGS (6)
  1. PREDNISOLONE. [Concomitant]
     Active Substance: PREDNISOLONE
     Indication: PRODUCT USED FOR UNKNOWN INDICATION
     Dosage: 2 MG/KG
     Route: 042
     Dates: start: 20200824, end: 20200903
  2. PREDNISOLONE. [Concomitant]
     Active Substance: PREDNISOLONE
     Indication: PRODUCT USED FOR UNKNOWN INDICATION
     Dosage: 1 MG/KG
     Route: 048
     Dates: start: 20200819, end: 20200823
  3. ZOLGENSMA [Suspect]
     Active Substance: ONASEMNOGENE ABEPARVOVEC-XIOI
     Indication: SPINAL MUSCULAR ATROPHY
     Dosage: 52.3 ML (1.1 X E14VG/KG)
     Route: 041
     Dates: start: 20200820, end: 20200820
  4. PREDNISOLONE. [Concomitant]
     Active Substance: PREDNISOLONE
     Dosage: 0.25 MG/KG
     Route: 048
     Dates: start: 20201113
  5. PREDNISOLONE. [Concomitant]
     Active Substance: PREDNISOLONE
     Dosage: 0.5 MG/KG
     Route: 048
     Dates: start: 20201030, end: 20201112
  6. PREDNISOLONE. [Concomitant]
     Active Substance: PREDNISOLONE
     Dosage: 1 MG/KG
     Route: 048
     Dates: start: 20200904, end: 20201029

REACTIONS (11)
  - Aspartate aminotransferase increased [Recovered/Resolved]
  - Cytokine abnormal [Recovered/Resolved]
  - Hepatic function abnormal [Unknown]
  - Nausea [Unknown]
  - Pyrexia [Unknown]
  - Alanine aminotransferase increased [Recovered/Resolved]
  - Decreased appetite [Unknown]
  - Thrombocytopenia [Recovered/Resolved]
  - Hypophagia [Recovered/Resolved]
  - Serum ferritin increased [Unknown]
  - Vomiting [Unknown]

NARRATIVE: CASE EVENT DATE: 20200821
